FAERS Safety Report 7066485-X (Version None)
Quarter: 2010Q4

REPORT INFORMATION
  Report Type: 
  Country: None (occurrence: None)
  Receive Date: 20101027
  Receipt Date: 20100428
  Transmission Date: 20110411
  Serious: No
  Sender: FDA-Public Use
  Company Number: US-WYE-H14540910

PATIENT
  Age: 59 Year
  Sex: Female
  Weight: 54.48 kg

DRUGS (1)
  1. PREMPRO [Suspect]
     Indication: PRODUCT USED FOR UNKNOWN INDICATION
     Dosage: FREQUENCY UNKNOWN
     Route: 065

REACTIONS (2)
  - DRUG INEFFECTIVE [None]
  - PRODUCT QUALITY ISSUE [None]
